FAERS Safety Report 13895944 (Version 1)
Quarter: 2017Q3

REPORT INFORMATION
  Report Type: Spontaneous
  Country: US (occurrence: None)
  Receive Date: 20170815
  Receipt Date: 20170815
  Transmission Date: 20171127
  Serious: Yes (Hospitalization)
  Sender: FDA-Public Use
  Company Number: None

PATIENT
  Age: 69 Year
  Sex: Male
  Weight: 76 kg

DRUGS (1)
  1. METFORMIN [Suspect]
     Active Substance: METFORMIN HYDROCHLORIDE
     Indication: DIABETES MELLITUS
     Dosage: 500 MG PM PO
     Route: 048
     Dates: start: 20160822, end: 20170524

REACTIONS (3)
  - Amyotrophic lateral sclerosis [None]
  - Lactic acidosis [None]
  - Delirium [None]

NARRATIVE: CASE EVENT DATE: 20170513
